FAERS Safety Report 6961682-3 (Version None)
Quarter: 2010Q3

REPORT INFORMATION
  Report Type: 
  Country: None (occurrence: None)
  Receive Date: 20100901
  Receipt Date: 20100825
  Transmission Date: 20110219
  Serious: Yes (Death)
  Sender: FDA-Public Use
  Company Number: NL-AMGEN-QUU434909

PATIENT
  Sex: Female

DRUGS (2)
  1. ENBREL [Suspect]
     Indication: RHEUMATOID ARTHRITIS
     Dosage: UNK
  2. HYDREA [Concomitant]
     Indication: POLYCYTHAEMIA VERA

REACTIONS (1)
  - ACUTE MYELOID LEUKAEMIA [None]
